FAERS Safety Report 8225808-6 (Version None)
Quarter: 2012Q1

REPORT INFORMATION
  Report Type: 
  Country: None (occurrence: None)
  Receive Date: 20120321
  Receipt Date: 20120314
  Transmission Date: 20120608
  Serious: Yes (Other)
  Sender: FDA-Public Use
  Company Number: US-PFIZER INC-2012026946

PATIENT
  Sex: Female
  Weight: 78.005 kg

DRUGS (10)
  1. CHANTIX [Suspect]
     Dosage: 0.5 MG, 1X/DAY
     Route: 048
     Dates: start: 20110101, end: 20110101
  2. METFORMIN HYDROCHLORIDE [Concomitant]
     Indication: DIABETES MELLITUS
     Dosage: 500 MG, UNK
  3. VITAMIN D [Concomitant]
     Dosage: UNK
  4. CHANTIX [Suspect]
     Indication: SMOKING CESSATION THERAPY
     Dosage: UNK
     Route: 048
  5. CHANTIX [Suspect]
     Dosage: UNK
     Route: 048
     Dates: start: 20120301
  6. FEMARA [Concomitant]
     Indication: LYMPHOMA
  7. CHANTIX [Suspect]
     Dosage: 0.5 MG, DAILY
     Route: 048
     Dates: start: 20120306, end: 20120301
  8. FEMARA [Concomitant]
     Indication: BREAST CANCER
     Dosage: 2.5 MG, UNK
     Dates: start: 20020101
  9. CRESTOR [Concomitant]
     Indication: BLOOD CHOLESTEROL INCREASED
     Dosage: 10 MG, UNK
  10. FEMARA [Concomitant]
     Indication: CERVIX CARCINOMA

REACTIONS (8)
  - IRRITABILITY [None]
  - DIZZINESS [None]
  - SLEEP DISORDER [None]
  - PAIN [None]
  - ANXIETY [None]
  - ERUCTATION [None]
  - TENDON RUPTURE [None]
  - AGITATION [None]
